FAERS Safety Report 8795260 (Version 1)
Quarter: 2012Q4

REPORT INFORMATION
  Report Type: 
  Country: AU (occurrence: AU)
  Receive Date: 20120917
  Receipt Date: 20120917
  Transmission Date: 20130627
  Serious: Yes (Other)
  Sender: FDA-Public Use
  Company Number: PHHY2012AU080150

PATIENT
  Age: 70 Year
  Sex: Female

DRUGS (8)
  1. ACLASTA [Suspect]
     Dosage: UNK UKN, UNK
     Route: 042
  2. CALCIA [Concomitant]
  3. FLIXOTIDE [Concomitant]
  4. NATRILIX [Concomitant]
  5. OMEPRAZOLE [Concomitant]
  6. PANADOL [Concomitant]
  7. SLOW-K [Concomitant]
  8. VENTOLIN [Concomitant]

REACTIONS (6)
  - Condition aggravated [Unknown]
  - Uveitis [Unknown]
  - Arthralgia [Unknown]
  - Bone pain [Unknown]
  - Paraesthesia [Unknown]
  - Vomiting [Unknown]
